FAERS Safety Report 13344743 (Version 1)
Quarter: 2017Q1

REPORT INFORMATION
  Report Type: Spontaneous
  Country: US (occurrence: US)
  Receive Date: 20170317
  Receipt Date: 20170317
  Transmission Date: 20170428
  Serious: No
  Sender: FDA-Public Use
  Company Number: US-AUROBINDO-AUR-APL-2013-08912

PATIENT

DRUGS (1)
  1. RIZATRIPTAN BENZOATE TABLETS, 5 MG (BASE ) [Suspect]
     Active Substance: RIZATRIPTAN BENZOATE
     Indication: MIGRAINE
     Dosage: UNK UNK,UNK,
     Route: 065

REACTIONS (3)
  - Drug ineffective [Unknown]
  - Chest pain [Unknown]
  - Product taste abnormal [Unknown]
